FAERS Safety Report 16134052 (Version 3)
Quarter: 2020Q3

REPORT INFORMATION
  Report Type: Spontaneous
  Country: FR (occurrence: FR)
  Receive Date: 20190329
  Receipt Date: 20200910
  Transmission Date: 20201102
  Serious: Yes (Congenital Anomaly)
  Sender: FDA-Public Use
  Company Number: FR-UCBSA-2019011656

PATIENT
  Sex: Female

DRUGS (3)
  1. KEPPRA [Suspect]
     Active Substance: LEVETIRACETAM
     Indication: EPILEPSY
     Dosage: 1750 MG A DAY
     Route: 064
     Dates: start: 201807
  2. TECFIDERA [Suspect]
     Active Substance: DIMETHYL FUMARATE
     Indication: MULTIPLE SCLEROSIS
     Dosage: 480 MG DAILY
     Route: 064
     Dates: start: 201807, end: 20180725
  3. LAMICTAL [Suspect]
     Active Substance: LAMOTRIGINE
     Indication: EPILEPSY
     Dosage: 400 MG DAILY
     Route: 064
     Dates: start: 201807

REACTIONS (2)
  - Maternal exposure during pregnancy [Unknown]
  - Congenital diaphragmatic hernia [Recovered/Resolved]

NARRATIVE: CASE EVENT DATE: 201807
